FAERS Safety Report 12928970 (Version 2)
Quarter: 2017Q1

REPORT INFORMATION
  Report Type: Report from Study
  Country: US (occurrence: US)
  Receive Date: 20161110
  Receipt Date: 20170123
  Transmission Date: 20170428
  Serious: Yes (Other)
  Sender: FDA-Public Use
  Company Number: US-AMGEN-USASL2016155519

PATIENT
  Age: 60 Year
  Sex: Female
  Weight: 87.98 kg

DRUGS (1)
  1. REPATHA [Suspect]
     Active Substance: EVOLOCUMAB
     Indication: BLOOD CHOLESTEROL INCREASED
     Dosage: 140 MG/ML, Q2WK
     Route: 058
     Dates: start: 20161027

REACTIONS (7)
  - Cardiac flutter [Unknown]
  - Nausea [Unknown]
  - Palpitations [Unknown]
  - Wrong technique in product usage process [Unknown]
  - Injection site pain [Unknown]
  - Underdose [Unknown]
  - Somnolence [Unknown]

NARRATIVE: CASE EVENT DATE: 201610
